FAERS Safety Report 6553742-6 (Version None)
Quarter: 2010Q1

REPORT INFORMATION
  Report Type: 
  Country: None (occurrence: None)
  Receive Date: 20100127
  Receipt Date: 20100114
  Transmission Date: 20100710
  Serious: Yes (Hospitalization)
  Sender: FDA-Public Use
  Company Number: PHHY2010CL02227

PATIENT
  Age: 81 Year
  Sex: Female

DRUGS (2)
  1. TAREG D [Suspect]
     Indication: HYPERTENSION
     Dosage: 1 TABLET (80/12.5 MG) PER DAY
  2. ATENOLOL [Concomitant]

REACTIONS (2)
  - ARTHRITIS [None]
  - FOOT OPERATION [None]
